FAERS Safety Report 9027176 (Version 3)
Quarter: 2014Q1

REPORT INFORMATION
  Report Type: Report from Study
  Country: AU (occurrence: AU)
  Receive Date: 20130123
  Receipt Date: 20140129
  Transmission Date: 20141002
  Serious: Yes (Hospitalization)
  Sender: FDA-Public Use
  Company Number: AU-GLAXOSMITHKLINE-B0861509A

PATIENT
  Age: 63 Year
  Sex: Male
  Weight: 72 kg

DRUGS (27)
  1. PAZOPANIB [Suspect]
     Indication: METASTATIC RENAL CELL CARCINOMA
     Route: 048
     Dates: end: 20130114
  2. QUINAPRIL + HYDROCHLOROTHIAZIDE [Concomitant]
     Indication: HYPERTENSION
     Route: 048
     Dates: start: 20070101
  3. STEMETIL [Concomitant]
     Indication: NAUSEA
     Dosage: 5UNIT AS REQUIRED
     Route: 048
     Dates: start: 20120509
  4. METOCLOPRAMIDE [Concomitant]
     Indication: NAUSEA
     Dosage: 10UNIT AS REQUIRED
     Route: 048
     Dates: start: 20120509
  5. CONSTIPATION DRUG [Concomitant]
     Indication: CONSTIPATION
     Route: 048
     Dates: start: 20120517
  6. MEGESTROL ACETATE [Concomitant]
     Indication: DECREASED APPETITE
     Dosage: 160MG PER DAY
     Route: 048
     Dates: start: 20120517
  7. AMLODIPINE BESILATE + ATORVASTATIN CALCIUM [Concomitant]
     Indication: HYPERCHOLESTEROLAEMIA
     Route: 048
     Dates: start: 20090101
  8. AMINO ACIDS [Concomitant]
     Indication: WEIGHT DECREASED
     Dosage: 240MG PER DAY
     Route: 048
     Dates: start: 20120517
  9. PARACETAMOL [Concomitant]
     Indication: PAIN
     Dosage: 1000MG AS REQUIRED
     Route: 048
  10. TAZOCIN [Concomitant]
     Indication: INFECTION
     Dosage: 4.5G THREE TIMES PER DAY
     Route: 042
     Dates: start: 20130114
  11. DEXAMETHASONE [Concomitant]
     Route: 048
     Dates: start: 20130809, end: 20130823
  12. GEMFIBROZIL [Concomitant]
     Indication: LIPIDS INCREASED
     Route: 048
     Dates: start: 20130904
  13. DOCUSATE SODIUM\SENNOSIDES [Concomitant]
     Indication: HOSPITALISATION
     Route: 048
     Dates: start: 20130809, end: 20130823
  14. CLEXANE [Concomitant]
     Indication: HOSPITALISATION
     Dates: start: 20130821, end: 20130822
  15. NYSTATIN DROPS [Concomitant]
     Indication: HOSPITALISATION
     Dates: start: 20130810, end: 20130823
  16. PANTOPRAZOLE [Concomitant]
     Indication: HOSPITALISATION
     Route: 048
     Dates: start: 20130810, end: 20130823
  17. CADUET [Concomitant]
     Route: 048
     Dates: start: 20100701
  18. ACURETIC [Concomitant]
     Dates: start: 20070701
  19. MAXOLON [Concomitant]
     Route: 048
     Dates: start: 20120509
  20. MOVICOL [Concomitant]
     Route: 048
     Dates: start: 20120517
  21. THYROXINE [Concomitant]
     Route: 048
     Dates: start: 20120629
  22. SOMAC [Concomitant]
     Dates: start: 20120619
  23. AMPHOTERICIN [Concomitant]
     Dates: start: 20120619, end: 20120628
  24. KEFLEX [Concomitant]
     Indication: RASH
     Route: 048
     Dates: start: 20120619, end: 20120628
  25. NILSTAT [Concomitant]
     Route: 048
     Dates: start: 20130628
  26. GASTRO-STOP (AUSTRALIA) [Concomitant]
     Dates: start: 20120823
  27. ADVANTAN CREAM [Concomitant]
     Route: 061
     Dates: start: 20130307

REACTIONS (1)
  - Gastroenteritis [Recovered/Resolved]
